FAERS Safety Report 6110618-6 (Version None)
Quarter: 2009Q1

REPORT INFORMATION
  Report Type: 
  Country: None (occurrence: None)
  Receive Date: 20090310
  Receipt Date: 20090303
  Transmission Date: 20090719
  Serious: Yes (Life-Threatening, Hospitalization)
  Sender: FDA-Public Use
  Company Number: CA-GILEAD-2009-0020646

PATIENT
  Age: 47 Year
  Sex: Female

DRUGS (2)
  1. ATRIPLA [Suspect]
     Indication: HIV INFECTION
     Route: 048
     Dates: start: 20080912, end: 20090203
  2. CEFTIN [Concomitant]
     Dates: start: 20081203, end: 20081209

REACTIONS (1)
  - ACUTE HEPATIC FAILURE [None]
